FAERS Safety Report 6370149-5 (Version None)
Quarter: 2009Q3

REPORT INFORMATION
  Report Type: 
  Country: None (occurrence: None)
  Receive Date: 20090923
  Receipt Date: 20071001
  Transmission Date: 20100115
  Serious: No
  Sender: FDA-Public Use
  Company Number: US-ASTRAZENECA-2006UW20975

PATIENT
  Age: 12641 Day
  Sex: Female
  Weight: 45.4 kg

DRUGS (42)
  1. SEROQUEL [Suspect]
     Indication: SLEEP DISORDER
     Route: 048
     Dates: start: 19980101, end: 20020101
  2. SEROQUEL [Suspect]
     Indication: HALLUCINATION
     Route: 048
     Dates: start: 19980101, end: 20020101
  3. SEROQUEL [Suspect]
     Indication: PSYCHOTIC DISORDER
     Route: 048
     Dates: start: 19980101, end: 20020101
  4. SEROQUEL [Suspect]
     Indication: SEDATION
     Route: 048
     Dates: start: 19980101, end: 20020101
  5. SEROQUEL [Suspect]
     Dosage: 25MG-600MG
     Route: 048
     Dates: start: 19991103
  6. SEROQUEL [Suspect]
     Dosage: 25MG-600MG
     Route: 048
     Dates: start: 19991103
  7. SEROQUEL [Suspect]
     Dosage: 25MG-600MG
     Route: 048
     Dates: start: 19991103
  8. SEROQUEL [Suspect]
     Dosage: 25MG-600MG
     Route: 048
     Dates: start: 19991103
  9. HALDOL [Concomitant]
     Dates: start: 20070210
  10. RISPERDAL [Concomitant]
  11. ZYPREXA [Concomitant]
  12. TRAZODONE [Concomitant]
  13. VISARIL [Concomitant]
     Dosage: 100 MG
  14. PROPRANOLOL [Concomitant]
  15. XANAX [Concomitant]
  16. SERZONE [Concomitant]
  17. PAXIL [Concomitant]
  18. AMITRIPTYLINE [Concomitant]
  19. ATENOLOL [Concomitant]
  20. CLONIDINE [Concomitant]
  21. CELEXA [Concomitant]
  22. THIAMINE HCL [Concomitant]
  23. CHLORHEXIDINE GLUCONATE [Concomitant]
  24. IBUPROFEN [Concomitant]
  25. GUAIFENESIN [Concomitant]
  26. TYLENOL (CAPLET) [Concomitant]
  27. ATARAX [Concomitant]
  28. REMERON [Concomitant]
  29. DULCOLAX [Concomitant]
  30. CLINDAMYCIN [Concomitant]
  31. PHENERGAN [Concomitant]
  32. COGENTIN [Concomitant]
  33. DICYCLOMINE [Concomitant]
  34. NICOTINE [Concomitant]
  35. CYCLOBENZAPRINE [Concomitant]
  36. ANAPROX [Concomitant]
  37. LORTAB [Concomitant]
  38. NEURONTIN [Concomitant]
  39. BUSPAR [Concomitant]
  40. CLONAZEPAM [Concomitant]
  41. LORAZEPAM [Concomitant]
  42. CEPACOL [Concomitant]

REACTIONS (11)
  - CARDIAC DISORDER [None]
  - CHEST PAIN [None]
  - CYSTITIS [None]
  - GINGIVITIS [None]
  - HYPERGLYCAEMIA [None]
  - HYPERTENSION [None]
  - MALAISE [None]
  - ORAL PAIN [None]
  - TOOTH INFECTION [None]
  - TOOTHACHE [None]
  - URINARY TRACT INFECTION [None]
